FAERS Safety Report 25747256 (Version 1)
Quarter: 2025Q3

REPORT INFORMATION
  Report Type: Spontaneous
  Country: US (occurrence: US)
  Receive Date: 20250901
  Receipt Date: 20250901
  Transmission Date: 20251020
  Serious: No
  Sender: CIPLA
  Company Number: US-CIPLA LTD.-2025US10577

PATIENT

DRUGS (1)
  1. BUDESONIDE [Suspect]
     Active Substance: BUDESONIDE
     Indication: Product used for unknown indication
     Dosage: 0.5 MILLILITER, QD, STRENGTH: 0.5 / 2ML, DIRECTLY INTO NOSE WITH SYRINGE
     Route: 045
     Dates: start: 202508

REACTIONS (6)
  - Recalled product administered [Unknown]
  - Recalled product [Unknown]
  - Product packaging quantity issue [Unknown]
  - Wrong technique in product usage process [Unknown]
  - Incorrect route of product administration [Unknown]
  - Product residue present [Unknown]

NARRATIVE: CASE EVENT DATE: 20250801
